FAERS Safety Report 15183043 (Version 1)
Quarter: 2018Q3

REPORT INFORMATION
  Report Type: Spontaneous
  Country: US (occurrence: US)
  Receive Date: 20180625
  Receipt Date: 20180625
  Transmission Date: 20181010
  Serious: Yes (Life-Threatening, Other)
  Sender: FDA-Public Use
  Company Number: None

PATIENT
  Age: 35 Year
  Sex: Female
  Weight: 53.07 kg

DRUGS (3)
  1. VITAMIN B [Concomitant]
     Active Substance: VITAMIN B
  2. FLAXSEED [Concomitant]
     Active Substance: FLAX SEED
  3. CLOMIPRAMINE [Suspect]
     Active Substance: CLOMIPRAMINE
     Indication: INFERTILITY
     Dosage: ?          QUANTITY:2 DF DOSAGE FORM;?
     Dates: start: 20180505, end: 20180506

REACTIONS (7)
  - Product dispensing error [None]
  - Product name confusion [None]
  - Loss of consciousness [None]
  - Dizziness [None]
  - Headache [None]
  - Wrong drug administered [None]
  - Vomiting [None]

NARRATIVE: CASE EVENT DATE: 20180505
